FAERS Safety Report 9891216 (Version 1)
Quarter: 2014Q1

REPORT INFORMATION
  Report Type: Spontaneous
  Country: JP (occurrence: JP)
  Receive Date: 20140212
  Receipt Date: 20140212
  Transmission Date: 20141002
  Serious: Yes (Other)
  Sender: FDA-Public Use
  Company Number: JP-JNJFOC-20140205011

PATIENT
  Age: 5 Decade
  Sex: Female

DRUGS (2)
  1. XARELTO [Suspect]
     Indication: THROMBOSIS PROPHYLAXIS
     Route: 048
  2. AMIODARONE HYDROCHLORIDE [Concomitant]
     Route: 065
     Dates: end: 201401

REACTIONS (1)
  - Interstitial lung disease [Recovered/Resolved]
